FAERS Safety Report 7875566-X (Version None)
Quarter: 2011Q4

REPORT INFORMATION
  Report Type: 
  Country: None (occurrence: None)
  Receive Date: 20111031
  Receipt Date: 20111019
  Transmission Date: 20120403
  Serious: Yes (Hospitalization)
  Sender: FDA-Public Use
  Company Number: US-SANOFI-AVENTIS-2011SA059773

PATIENT
  Age: 53 Year
  Sex: Male
  Weight: 52.88 kg

DRUGS (12)
  1. DOCETAXEL [Suspect]
     Indication: NON-SMALL CELL LUNG CANCER STAGE IV
     Dosage: ON DAY 1
     Route: 041
     Dates: start: 20110808, end: 20110808
  2. MEGACE [Concomitant]
     Dates: start: 20100817
  3. OXYCONTIN [Concomitant]
     Indication: PAIN
     Dates: start: 20110802
  4. DEXAMETHASONE [Concomitant]
     Indication: PREMEDICATION
     Dates: start: 20110807
  5. DOCUSATE SODIUM W/SENNA [Concomitant]
     Indication: CONSTIPATION
     Dates: start: 20110802
  6. BLINDED THERAPY [Suspect]
     Dosage: ON DAY 1
     Route: 042
     Dates: start: 20110808, end: 20110808
  7. CORTICOSTEROIDS [Concomitant]
  8. MIRALAX [Concomitant]
     Indication: CONSTIPATION
     Dates: start: 20110802
  9. FENTANYL-100 [Concomitant]
     Indication: PAIN
     Dates: start: 20110802
  10. DOCETAXEL [Suspect]
     Dosage: ON DAY 1
     Route: 041
     Dates: start: 20110829
  11. BLINDED THERAPY [Suspect]
     Indication: NON-SMALL CELL LUNG CANCER STAGE IV
     Route: 042
     Dates: start: 20110829
  12. OXYCODONE HCL [Concomitant]
     Indication: PAIN
     Dates: start: 20110802

REACTIONS (2)
  - DEHYDRATION [None]
  - HYPONATRAEMIA [None]
